FAERS Safety Report 8615386-1 (Version None)
Quarter: 2012Q3

REPORT INFORMATION
  Report Type: 
  Country: None (occurrence: None)
  Receive Date: 20120823
  Receipt Date: 20120820
  Transmission Date: 20120928
  Serious: Yes (Other)
  Sender: FDA-Public Use
  Company Number: US-PFIZER INC-2012204312

PATIENT
  Age: 89 Year
  Sex: Female
  Weight: 63.492 kg

DRUGS (4)
  1. ASCORBIC ACID [Concomitant]
     Dosage: UNK, DAILY
  2. CALTRATE 600 PLUS CHEWABLE [Suspect]
     Indication: MINERAL SUPPLEMENTATION
     Dosage: UNK, DAILY
     Dates: end: 20120101
  3. CENTRUM [Concomitant]
     Dosage: UNK, DAILY
  4. CORGARD [Suspect]
     Indication: CARDIAC DISORDER
     Dosage: 20 MG ONE IN THE MORNING AND ONE HALF AT NIGHT, 2X/DAY

REACTIONS (5)
  - FOREIGN BODY [None]
  - CHOKING [None]
  - WRONG TECHNIQUE IN DRUG USAGE PROCESS [None]
  - PRODUCT SIZE ISSUE [None]
  - DYSPHAGIA [None]
